FAERS Safety Report 14701615 (Version 3)
Quarter: 2018Q3

REPORT INFORMATION
  Report Type: Report from Study
  Country: None (occurrence: US)
  Receive Date: 20180331
  Receipt Date: 20180905
  Transmission Date: 20181010
  Serious: Yes (Other)
  Sender: FDA-Public Use
  Company Number: US-ABBVIE-16K-163-1793703-00

PATIENT
  Sex: Male

DRUGS (2)
  1. HUMIRA [Suspect]
     Active Substance: ADALIMUMAB
     Indication: RHEUMATOID ARTHRITIS
     Route: 058
     Dates: end: 2018
  2. HUMIRA [Suspect]
     Active Substance: ADALIMUMAB
     Route: 058
     Dates: start: 2018

REACTIONS (20)
  - Pain in extremity [Unknown]
  - Lethargy [Unknown]
  - Intervertebral disc degeneration [Unknown]
  - Drug effect decreased [Unknown]
  - Nerve compression [Unknown]
  - Back pain [Unknown]
  - Exostosis [Unknown]
  - Knee arthroplasty [Unknown]
  - Grip strength decreased [Unknown]
  - Arthralgia [Unknown]
  - Fatigue [Unknown]
  - Musculoskeletal stiffness [Unknown]
  - Joint stiffness [Unknown]
  - Spinal pain [Unknown]
  - Sensitivity to weather change [Unknown]
  - Pain [Unknown]
  - Osteoarthritis [Unknown]
  - Muscular weakness [Unknown]
  - Rheumatoid arthritis [Unknown]
  - Gait disturbance [Unknown]

NARRATIVE: CASE EVENT DATE: 2007
